FAERS Safety Report 11864029 (Version 5)
Quarter: 2016Q1

REPORT INFORMATION
  Report Type: Spontaneous
  Country: US (occurrence: US)
  Receive Date: 20151223
  Receipt Date: 20160310
  Transmission Date: 20160526
  Serious: Yes (Other)
  Sender: FDA-Public Use
  Company Number: US-JNJFOC-20151217088

PATIENT
  Sex: Female
  Weight: 81.65 kg

DRUGS (1)
  1. DURAGESIC [Suspect]
     Active Substance: FENTANYL
     Indication: DIABETIC NEUROPATHY
     Dosage: 12 MCG AND A 25 MCG PATCH TO ACHIEVE THE 37 MCG
     Route: 062

REACTIONS (5)
  - Eye haemorrhage [Not Recovered/Not Resolved]
  - Blindness [Unknown]
  - Drug dose omission [Unknown]
  - Product packaging quantity issue [Unknown]
  - Diabetic retinopathy [Not Recovered/Not Resolved]
